FAERS Safety Report 9735826 (Version 1)
Quarter: 2013Q4

REPORT INFORMATION
  Report Type: Spontaneous
  Country: US (occurrence: US)
  Receive Date: 20131206
  Receipt Date: 20131206
  Transmission Date: 20140711
  Serious: No
  Sender: FDA-Public Use
  Company Number: US-GILEAD-2009-0023810

PATIENT
  Sex: Female
  Weight: 72.57 kg

DRUGS (15)
  1. LETAIRIS [Suspect]
     Indication: PULMONARY ARTERIAL HYPERTENSION
     Route: 048
     Dates: start: 20080801
  2. LISINOPRIL [Concomitant]
  3. AUGMENTIN [Concomitant]
  4. ADVAIR [Concomitant]
  5. ALBUTEROL [Concomitant]
  6. COMBIVENT [Concomitant]
  7. SPIRIVA [Concomitant]
  8. SINGULAIR [Concomitant]
  9. AVANDIA [Concomitant]
  10. SIMPLY SLEEP [Concomitant]
  11. NASACORT [Concomitant]
  12. IBUPROFEN [Concomitant]
  13. CLARITIN [Concomitant]
  14. GLYBURIDE [Concomitant]
  15. CONJ ESTROGEN [Concomitant]

REACTIONS (1)
  - Dyspnoea [Unknown]
